FAERS Safety Report 20978294 (Version 1)
Quarter: 2022Q2

REPORT INFORMATION
  Report Type: Spontaneous
  Country: US (occurrence: US)
  Receive Date: 20220618
  Receipt Date: 20220618
  Transmission Date: 20220720
  Serious: No
  Sender: FDA-Public Use
  Company Number: US-SA-SAC20220614000475

PATIENT
  Sex: Female

DRUGS (14)
  1. DUPIXENT [Suspect]
     Active Substance: DUPILUMAB
     Indication: Psoriasis
     Dosage: 300 MG, QOW
     Route: 058
  2. ALPRAZOLAM [Concomitant]
     Active Substance: ALPRAZOLAM
     Dosage: UNK
  3. CLOBETASOL [Concomitant]
     Active Substance: CLOBETASOL
     Dosage: CLOBETASOL SOL 0.05%
  4. FLUOXETINE [Concomitant]
     Active Substance: FLUOXETINE HYDROCHLORIDE
     Indication: Major depression
     Dosage: 20MG
  5. GABAPENTIN [Concomitant]
     Active Substance: GABAPENTIN
     Indication: Bipolar disorder
     Dosage: UNK
  6. ONDANSETRON [Concomitant]
     Active Substance: ONDANSETRON
     Dosage: ONDANSETRON TAB 4MG ODT
  7. PIMECROLIMUS [Concomitant]
     Active Substance: PIMECROLIMUS
     Indication: Dermatitis atopic
     Dosage: UNK
  8. PREDNISONE [Concomitant]
     Active Substance: PREDNISONE
     Indication: Dermatitis atopic
     Dosage: 20 UNK
  9. PREDNISONE [Concomitant]
     Active Substance: PREDNISONE
     Indication: Asthma
  10. PROMETHAZINE [Concomitant]
     Active Substance: PROMETHAZINE HYDROCHLORIDE
     Indication: Pain
     Dosage: UNK
  11. REXULTI [Concomitant]
     Active Substance: BREXPIPRAZOLE
     Indication: Major depression
     Dosage: UNK
  12. HYDROXYZINE [Concomitant]
     Active Substance: HYDROXYZINE HYDROCHLORIDE
     Dosage: HYDROXYZ PAM CAP 50MG;
  13. LEVETIRACETAM [Concomitant]
     Active Substance: LEVETIRACETAM
     Dosage: LEVETIRACETA TAB 250MG; LEVETIRACETA TAB 500MG;
  14. DEXTROAMPHETAMINE HYDROCHLORIDE [Concomitant]
     Active Substance: DEXTROAMPHETAMINE HYDROCHLORIDE
     Dosage: AMPHET/DEXTR TAB 20MG

REACTIONS (5)
  - Pruritus [Unknown]
  - Pain [Unknown]
  - Sleep disorder [Unknown]
  - Insomnia [Unknown]
  - Product use in unapproved indication [Unknown]
